FAERS Safety Report 19107045 (Version 2)
Quarter: 2021Q2

REPORT INFORMATION
  Report Type: Spontaneous
  Country: US (occurrence: US)
  Receive Date: 20210408
  Receipt Date: 20210512
  Transmission Date: 20210717
  Serious: Yes (Hospitalization, Other)
  Sender: FDA-Public Use
  Company Number: US-ACCORD-221621

PATIENT
  Age: 85 Year
  Sex: Female
  Weight: 50.8 kg

DRUGS (9)
  1. ATORVASTATIN/ATORVASTATIN CALCIUM [Suspect]
     Active Substance: ATORVASTATIN CALCIUM
     Indication: CARDIOMYOPATHY
     Route: 048
  2. APIXABAN [Concomitant]
     Active Substance: APIXABAN
     Indication: AMYLOIDOSIS SENILE
  3. TAFAMIDIS [Interacting]
     Active Substance: TAFAMIDIS MEGLUMINE
     Indication: CARDIOMYOPATHY
     Route: 048
  4. APIXABAN [Concomitant]
     Active Substance: APIXABAN
     Indication: CARDIOMYOPATHY
  5. TORASEMIDE [Concomitant]
     Active Substance: TORSEMIDE
     Indication: AMYLOIDOSIS SENILE
  6. AMIODARONE [Interacting]
     Active Substance: AMIODARONE
     Indication: CARDIOMYOPATHY
     Route: 048
  7. TAFAMIDIS [Interacting]
     Active Substance: TAFAMIDIS MEGLUMINE
     Indication: AMYLOIDOSIS SENILE
  8. AMIODARONE [Interacting]
     Active Substance: AMIODARONE
     Indication: AMYLOIDOSIS SENILE
  9. TORSEMIDE. [Concomitant]
     Active Substance: TORSEMIDE
     Indication: CARDIOMYOPATHY

REACTIONS (5)
  - Alanine aminotransferase increased [Recovered/Resolved]
  - Rhabdomyolysis [Recovering/Resolving]
  - Drug interaction [Unknown]
  - Off label use [Unknown]
  - Aspartate aminotransferase increased [Recovered/Resolved]
